FAERS Safety Report 14935456 (Version 1)
Quarter: 2018Q2

REPORT INFORMATION
  Report Type: Spontaneous
  Country: US (occurrence: US)
  Receive Date: 20180524
  Receipt Date: 20180524
  Transmission Date: 20180711
  Serious: Yes (Hospitalization)
  Sender: FDA-Public Use
  Company Number: US-MIST-TIR-2018-0517

PATIENT
  Age: 56 Year
  Sex: Female

DRUGS (4)
  1. TIROSINT [Suspect]
     Active Substance: LEVOTHYROXINE SODIUM
     Dosage: 75MCG DAILY
     Route: 048
     Dates: start: 201801, end: 20180218
  2. TIROSINT [Suspect]
     Active Substance: LEVOTHYROXINE SODIUM
     Indication: HYPOTHYROIDISM
     Dosage: 75MCG DAILY
     Route: 048
     Dates: start: 2016, end: 201801
  3. TIROSINT [Suspect]
     Active Substance: LEVOTHYROXINE SODIUM
     Dosage: 75MCG DAILY
     Route: 048
     Dates: start: 20180219
  4. NEURONTIN [Concomitant]
     Active Substance: GABAPENTIN
     Indication: PAIN
     Dosage: 100MG AS NEEDED

REACTIONS (7)
  - Sjogren^s syndrome [Not Recovered/Not Resolved]
  - Palpitations [Recovered/Resolved]
  - Pancreatitis [Unknown]
  - Product quality issue [Unknown]
  - Oedema peripheral [Recovered/Resolved]
  - Expired product administered [Unknown]
  - Anxiety [Recovered/Resolved]

NARRATIVE: CASE EVENT DATE: 2017
